FAERS Safety Report 14825776 (Version 1)
Quarter: 2018Q2

REPORT INFORMATION
  Report Type: Spontaneous
  Country: GB (occurrence: GB)
  Receive Date: 20180430
  Receipt Date: 20180430
  Transmission Date: 20180711
  Serious: Yes (Other)
  Sender: FDA-Public Use
  Company Number: GB-009507513-1804GBR009442

PATIENT
  Age: 73 Year
  Sex: Male
  Weight: 108 kg

DRUGS (12)
  1. ROZEX (METRONIDAZOLE) [Concomitant]
     Active Substance: METRONIDAZOLE
     Dosage: 2 DF, QD
     Dates: start: 20170826, end: 20170923
  2. WARFARIN SODIUM. [Concomitant]
     Active Substance: WARFARIN SODIUM
     Dosage: AS DIRECTED.
     Dates: start: 20150113
  3. SIMVASTATIN. [Suspect]
     Active Substance: SIMVASTATIN
     Dosage: UNK
     Dates: start: 20160331
  4. ALLOPURINOL. [Concomitant]
     Active Substance: ALLOPURINOL
     Dosage: 1 DF, QD
     Dates: start: 20151215
  5. BISOPROLOL [Concomitant]
     Active Substance: BISOPROLOL
     Dosage: 1 DF, QD
     Dates: start: 20141022
  6. CADEXOMER IODINE [Concomitant]
     Active Substance: CADEXOMER IODINE
     Dosage: USE AS DIRECTED.
     Dates: start: 20171031, end: 20171110
  7. FLOXACILLIN [Concomitant]
     Active Substance: FLUCLOXACILLIN
     Dosage: 4 DF, QD
     Dates: start: 20171002, end: 20171009
  8. DIGOXIN. [Concomitant]
     Active Substance: DIGOXIN
     Dosage: 1 DF, QD
     Dates: start: 20141022
  9. AMOXICILLIN (+) CLAVULANATE POTASSIUM [Concomitant]
     Active Substance: AMOXICILLIN\CLAVULANATE POTASSIUM
     Dosage: 3 DF, QD
     Dates: start: 20170925, end: 20171002
  10. AMLODIPINE [Concomitant]
     Active Substance: AMLODIPINE BESYLATE
     Dosage: 1 DF, QD
     Dates: start: 20170109
  11. BETAMETHASONE VALERATE. [Concomitant]
     Active Substance: BETAMETHASONE VALERATE
     Dosage: TWICE A DAY
     Dates: start: 20150224
  12. PENICILLIN V [Concomitant]
     Active Substance: PENICILLIN V
     Dosage: 2 DF, ONCE DAILY, REVIEW AT 1 YEAR TO
     Dates: start: 20171114

REACTIONS (1)
  - Bone pain [Recovered/Resolved]

NARRATIVE: CASE EVENT DATE: 20171114
